FAERS Safety Report 7511519-9 (Version None)
Quarter: 2011Q2

REPORT INFORMATION
  Report Type: 
  Country: None (occurrence: None)
  Receive Date: 20110519
  Receipt Date: 20110504
  Transmission Date: 20111010
  Serious: Yes (Other)
  Sender: FDA-Public Use
  Company Number: 2011MA005042

PATIENT
  Age: 41 Year
  Sex: Male

DRUGS (1)
  1. LORAZEPAM [Suspect]

REACTIONS (7)
  - TACHYCARDIA [None]
  - CONFUSIONAL STATE [None]
  - HYPERHIDROSIS [None]
  - FALL [None]
  - SUICIDE ATTEMPT [None]
  - DISORIENTATION [None]
  - COMA BLISTER [None]
